FAERS Safety Report 7495580-6 (Version None)
Quarter: 2011Q2

REPORT INFORMATION
  Report Type: 
  Country: None (occurrence: None)
  Receive Date: 20110523
  Receipt Date: 20110510
  Transmission Date: 20111010
  Serious: Yes (Hospitalization)
  Sender: FDA-Public Use
  Company Number: GB-JNJFOC-20110508140

PATIENT
  Age: 70 Year
  Sex: Male

DRUGS (18)
  1. TRAMADOL HCL [Suspect]
     Indication: BACK PAIN
     Route: 048
     Dates: start: 20100610, end: 20100624
  2. ALLOPURINOL [Concomitant]
     Route: 065
  3. RIVASTIGMINE [Concomitant]
     Route: 065
  4. SENNA-MINT WAF [Concomitant]
     Route: 065
  5. OMACOR [Concomitant]
     Route: 065
  6. TRIMETHOPRIM [Concomitant]
     Route: 065
  7. FYBOGEL [Concomitant]
     Route: 065
  8. CANDESARTAN CILEXETIL [Concomitant]
     Route: 065
  9. CITALOPRAM [Concomitant]
     Route: 065
  10. EZETIMIBE [Concomitant]
     Route: 065
  11. ACETAMINOPHEN [Concomitant]
     Route: 065
  12. SOLIFENACIN [Concomitant]
     Route: 065
  13. BETNOVATE-C [Concomitant]
     Route: 065
  14. CO-CARELDOPA [Concomitant]
     Route: 065
  15. GABAPENTIN [Concomitant]
     Route: 065
  16. LANSOPRAZOLE [Concomitant]
     Route: 065
  17. LATANOPROST [Concomitant]
     Route: 065
  18. FENOFIBRATE [Concomitant]
     Route: 065

REACTIONS (3)
  - HALLUCINATION, AUDITORY [None]
  - AGGRESSION [None]
  - HALLUCINATION, VISUAL [None]
